FAERS Safety Report 4449175-9 (Version None)
Quarter: 2004Q3

REPORT INFORMATION
  Report Type: 
  Country: None (occurrence: None)
  Receive Date: 20040910
  Receipt Date: 20040826
  Transmission Date: 20050211
  Serious: Yes (Other)
  Sender: FDA-Public Use
  Company Number: 2004-BP-07515RO

PATIENT
  Age: 18 Year
  Sex: Male

DRUGS (2)
  1. CALCITRIOL ORAL SOLUTION 1 MCG/ML (CALCITRIOL) [Suspect]
     Indication: HYPERPARATHYROIDISM
     Dosage: UP TO 19 MCG PER WEEK
     Dates: start: 19970101, end: 20010101
  2. SEVALAMER (CALCIUM ACETATE) [Concomitant]

REACTIONS (13)
  - BLOOD ALUMINIUM INCREASED [None]
  - BLOOD PARATHYROID HORMONE INCREASED [None]
  - CALCINOSIS [None]
  - CEREBRAL DISORDER [None]
  - EYE REDNESS [None]
  - FACIAL PALSY [None]
  - HYPERPLASIA [None]
  - MOVEMENT DISORDER [None]
  - NERVE INJURY [None]
  - NODULE [None]
  - PARATHYROID DISORDER [None]
  - PRURITUS [None]
  - VITH NERVE PARALYSIS [None]
